FAERS Safety Report 17675312 (Version 2)
Quarter: 2020Q2

REPORT INFORMATION
  Report Type: Spontaneous
  Country: HU (occurrence: HU)
  Receive Date: 20200416
  Receipt Date: 20200422
  Transmission Date: 20200714
  Serious: Yes (Other)
  Sender: FDA-Public Use
  Company Number: NVSC2020HU100810

PATIENT
  Age: 3 Year
  Sex: Male

DRUGS (1)
  1. CATAFLAM [Suspect]
     Active Substance: DICLOFENAC POTASSIUM
     Indication: ARTHRITIS
     Dosage: UNK
     Route: 048

REACTIONS (7)
  - Neuroblastoma [Unknown]
  - Enuresis [Unknown]
  - Product use in unapproved indication [Unknown]
  - Normocytic anaemia [Unknown]
  - Weight decreased [Unknown]
  - Decreased appetite [Unknown]
  - Anuria [Unknown]
